FAERS Safety Report 14614374 (Version 1)
Quarter: 2018Q1

REPORT INFORMATION
  Report Type: Spontaneous
  Country: US (occurrence: US)
  Receive Date: 20180308
  Receipt Date: 20180308
  Transmission Date: 20180509
  Serious: Yes (Other)
  Sender: FDA-Public Use
  Company Number: None

PATIENT
  Age: 34 Year
  Sex: Female
  Weight: 63 kg

DRUGS (11)
  1. ASTHMA INHALER [Concomitant]
     Active Substance: UNSPECIFIED INGREDIENT
  2. VITAMIN B12 [Concomitant]
     Active Substance: CYANOCOBALAMIN
  3. BUPROPION XL [Concomitant]
     Active Substance: BUPROPION
  4. MAGNESIUM [Concomitant]
     Active Substance: MAGNESIUM
  5. EASY IRON [Concomitant]
  6. WOMEN^S MULTI VITAMIN [Concomitant]
  7. VITAMIN D3 [Concomitant]
     Active Substance: CHOLECALCIFEROL
  8. XANAX [Concomitant]
     Active Substance: ALPRAZOLAM
  9. BUSPIRONE [Suspect]
     Active Substance: BUSPIRONE HYDROCHLORIDE
     Indication: ANXIETY
     Dosage: ?          QUANTITY:90 TABLET(S);OTHER FREQUENCY:1 A DAY, INCREASE;?
     Route: 048
     Dates: start: 20180206, end: 20180206
  10. FLONASE [Concomitant]
     Active Substance: FLUTICASONE PROPIONATE
  11. ZYRTEC [Concomitant]
     Active Substance: CETIRIZINE HYDROCHLORIDE

REACTIONS (11)
  - Dizziness [None]
  - Feeling abnormal [None]
  - Anxiety [None]
  - Nausea [None]
  - Tremor [None]
  - Vision blurred [None]
  - Dyspnoea [None]
  - Fatigue [None]
  - Suicidal ideation [None]
  - Headache [None]
  - Hypoaesthesia [None]

NARRATIVE: CASE EVENT DATE: 20180206
